FAERS Safety Report 4391888-1 (Version None)
Quarter: 2004Q3

REPORT INFORMATION
  Report Type: 
  Country: None (occurrence: None)
  Receive Date: 20040702
  Receipt Date: 20040330
  Transmission Date: 20050211
  Serious: Yes (Hospitalization)
  Sender: FDA-Public Use
  Company Number: 2004UW05293

PATIENT
  Age: 62 Year
  Sex: Female

DRUGS (6)
  1. CRESTOR [Suspect]
     Indication: HYPERCHOLESTEROLAEMIA
     Dosage: 10 MG QD PO
     Route: 048
     Dates: start: 20040201, end: 20040301
  2. THALIDOMIDE [Concomitant]
  3. DILTIAZEM [Concomitant]
  4. CLONIDINE HCL [Concomitant]
  5. ALDACTONE [Concomitant]
  6. HYDROURICIL [Concomitant]

REACTIONS (1)
  - RHABDOMYOLYSIS [None]
